FAERS Safety Report 8499263-5 (Version None)
Quarter: 2012Q3

REPORT INFORMATION
  Report Type: 
  Country: None (occurrence: None)
  Receive Date: 20120710
  Receipt Date: 20120703
  Transmission Date: 20120928
  Serious: Yes (Hospitalization)
  Sender: FDA-Public Use
  Company Number: PHEH2012US013221

PATIENT
  Sex: Female

DRUGS (9)
  1. COZAAR [Concomitant]
  2. D3 [Concomitant]
  3. METOPROLOL TARTRATE [Suspect]
     Dosage: 50 MG, BID
  4. ZOCOR [Concomitant]
  5. NEXIUM [Concomitant]
  6. FUROSEMIDE [Concomitant]
     Dosage: 20 MG, UNK
  7. POTASSIUM CHLORIDE [Concomitant]
     Dosage: 20 MG, UNK
  8. MULTIVITAMIN [Concomitant]
  9. CALCIUM WITH VITAMIN D [Concomitant]

REACTIONS (2)
  - HEADACHE [None]
  - BLOOD GLUCOSE DECREASED [None]
